FAERS Safety Report 12458348 (Version 1)
Quarter: 2016Q2

REPORT INFORMATION
  Report Type: Spontaneous
  Country: US (occurrence: US)
  Receive Date: 20160613
  Receipt Date: 20160613
  Transmission Date: 20160815
  Serious: No
  Sender: FDA-Public Use
  Company Number: US-ASTRAZENECA-2016SE39089

PATIENT
  Sex: Male
  Weight: 101.6 kg

DRUGS (7)
  1. HUMULIN N-100 [Concomitant]
     Indication: DIABETES MELLITUS
     Route: 058
     Dates: start: 2014
  2. BYDUREON [Suspect]
     Active Substance: EXENATIDE
     Indication: DIABETES MELLITUS
     Route: 058
     Dates: start: 2014
  3. BYETTA [Suspect]
     Active Substance: EXENATIDE
     Indication: DIABETES MELLITUS
     Route: 058
  4. CRESTOR [Suspect]
     Active Substance: ROSUVASTATIN CALCIUM
     Indication: DIABETES MELLITUS
     Route: 048
     Dates: start: 2014
  5. ALEVE [Concomitant]
     Active Substance: NAPROXEN SODIUM
     Indication: DIABETES MELLITUS
     Route: 048
     Dates: start: 2014
  6. METFORMIN [Concomitant]
     Active Substance: METFORMIN HYDROCHLORIDE
     Indication: DIABETES MELLITUS
     Route: 048
     Dates: start: 2014
  7. LISINOPRIL. [Concomitant]
     Active Substance: LISINOPRIL
     Indication: DIABETES MELLITUS
     Route: 048
     Dates: start: 2014

REACTIONS (4)
  - Device malfunction [Unknown]
  - Product use issue [Unknown]
  - Injection site haemorrhage [Unknown]
  - Off label use [Unknown]
